FAERS Safety Report 7428606-6 (Version None)
Quarter: 2011Q2

REPORT INFORMATION
  Report Type: 
  Country: None (occurrence: None)
  Receive Date: 20110421
  Receipt Date: 20110321
  Transmission Date: 20111010
  Serious: Yes (Hospitalization)
  Sender: FDA-Public Use
  Company Number: US-BAYER-2010-000592

PATIENT
  Age: 35 Year
  Sex: Female
  Weight: 102.95 kg

DRUGS (8)
  1. YAZ [Suspect]
     Dosage: UNK
     Dates: start: 20061019, end: 20080401
  2. TOPAMAX [Concomitant]
  3. OCELLA [Suspect]
  4. LORCET-HD [Concomitant]
  5. PROTONIX [Concomitant]
  6. TORADOL [Concomitant]
     Indication: HEADACHE
     Dosage: UNK
     Route: 042
  7. YASMIN [Suspect]
     Indication: PRODUCT USED FOR UNKNOWN INDICATION
  8. GERITOL [VITAMINS NOS] [Concomitant]
     Indication: VITAMIN SUPPLEMENTATION
     Dosage: UNK
     Dates: start: 20080301

REACTIONS (4)
  - DYSPNOEA [None]
  - PULMONARY EMBOLISM [None]
  - ACTIVITIES OF DAILY LIVING IMPAIRED [None]
  - MENTAL DISORDER [None]
